FAERS Safety Report 11362831 (Version 1)
Quarter: 2015Q3

REPORT INFORMATION
  Report Type: Spontaneous
  Country: US (occurrence: None)
  Receive Date: 20150807
  Receipt Date: 20150807
  Transmission Date: 20151125
  Serious: Yes (Other)
  Sender: FDA-Public Use
  Company Number: 2015-373395

PATIENT
  Age: 17 Year
  Sex: Male
  Weight: 100 kg

DRUGS (5)
  1. ONE A DAY MEN^S HEALTH [Suspect]
     Active Substance: VITAMINS
  2. HALOPERIDOL. [Concomitant]
     Active Substance: HALOPERIDOL
  3. ZOLOFT [Concomitant]
     Active Substance: SERTRALINE HYDROCHLORIDE
  4. MIDOL [Suspect]
     Active Substance: IBUPROFEN
     Dates: start: 20150706
  5. ZYPREXA [Concomitant]
     Active Substance: OLANZAPINE

REACTIONS (4)
  - Asthenia [None]
  - Suicide attempt [None]
  - Intentional product misuse [None]
  - Product use issue [None]

NARRATIVE: CASE EVENT DATE: 20150706
